FAERS Safety Report 5133878-7 (Version None)
Quarter: 2006Q4

REPORT INFORMATION
  Report Type: 
  Country: None (occurrence: None)
  Receive Date: 20061018
  Receipt Date: 20061002
  Transmission Date: 20070319
  Serious: Yes (Hospitalization)
  Sender: FDA-Public Use
  Company Number: US-2006-025729

PATIENT
  Age: 67 Year
  Sex: Female
  Weight: 68 kg

DRUGS (7)
  1. BETASERON [Suspect]
     Indication: RELAPSING-REMITTING MULTIPLE SCLEROSIS
     Dosage: 8 MIU, EVERY 2D, SUBCUTANEOUS
     Route: 058
     Dates: start: 20060301
  2. COUMADIN [Suspect]
     Indication: ATRIAL FIBRILLATION
     Dosage: UNK, UNK, UNK
     Dates: start: 19960101
  3. CELEXA [Concomitant]
  4. FLECAINIDE ACETATE [Concomitant]
  5. PROVERA [Concomitant]
  6. VIVELLE [Concomitant]
  7. VERAPAMIL [Concomitant]

REACTIONS (6)
  - ABDOMINAL PAIN LOWER [None]
  - HAEMATOCRIT DECREASED [None]
  - HAEMOGLOBIN DECREASED [None]
  - HEADACHE [None]
  - MUSCLE HAEMORRHAGE [None]
  - MUSCLE RUPTURE [None]
